FAERS Safety Report 7434994-7 (Version None)
Quarter: 2011Q2

REPORT INFORMATION
  Report Type: 
  Country: None (occurrence: None)
  Receive Date: 20110418
  Receipt Date: 20110330
  Transmission Date: 20111010
  Serious: Yes (Other)
  Sender: FDA-Public Use
  Company Number: 54973 AE # 417

PATIENT
  Age: 17 Year
  Sex: Male
  Weight: 79.3795 kg

DRUGS (3)
  1. MIGRAINE MEDICATIONS (AS NEEDED) [Concomitant]
  2. QUININE SULFATE [Suspect]
     Indication: MUSCLE SPASMS
     Dosage: 2 CAPS QHR AS NEEDED
  3. QUININE SULFATE [Suspect]
     Indication: PAIN
     Dosage: 2 CAPS QHR AS NEEDED

REACTIONS (4)
  - HEART RATE IRREGULAR [None]
  - MIGRAINE [None]
  - ENCEPHALITIS VIRAL [None]
  - MENINGITIS [None]
